FAERS Safety Report 15518214 (Version 2)
Quarter: 2020Q3

REPORT INFORMATION
  Report Type: Report from Study
  Country: TN (occurrence: TN)
  Receive Date: 20181017
  Receipt Date: 20200907
  Transmission Date: 20201102
  Serious: Yes (Death)
  Sender: FDA-Public Use
  Company Number: TN-PFIZER INC-2018420758

PATIENT
  Age: 41 Year
  Sex: Male

DRUGS (1)
  1. XALKORI [Suspect]
     Active Substance: CRIZOTINIB
     Indication: NON-SMALL CELL LUNG CANCER

REACTIONS (1)
  - Pulmonary embolism [Fatal]
